FAERS Safety Report 9183516 (Version 1)
Quarter: 2012Q4

REPORT INFORMATION
  Report Type: 
  Country: US (occurrence: US)
  Receive Date: 20121101
  Receipt Date: 20121101
  Transmission Date: 20130627
  Serious: Yes (Hospitalization)
  Sender: FDA-Public Use
  Company Number: US-ROCHE-1141058

PATIENT
  Age: 75 Year
  Sex: Male

DRUGS (3)
  1. RITUXAN [Suspect]
     Indication: RHEUMATOID ARTHRITIS
     Route: 065
  2. SOLU-MEDROL [Concomitant]
  3. TYLENOL [Concomitant]

REACTIONS (7)
  - Infusion related reaction [Unknown]
  - Myalgia [Unknown]
  - Chills [Unknown]
  - Oxygen saturation decreased [Unknown]
  - Tremor [Unknown]
  - Chills [Unknown]
  - Pyrexia [Unknown]
